FAERS Safety Report 13785096 (Version 3)
Quarter: 2017Q4

REPORT INFORMATION
  Report Type: Spontaneous
  Country: US (occurrence: US)
  Receive Date: 20170724
  Receipt Date: 20171212
  Transmission Date: 20180320
  Serious: Yes (Death)
  Sender: FDA-Public Use
  Company Number: US-IMPAX LABORATORIES, INC-2017-IPXL-01678

PATIENT
  Age: 78 Year
  Sex: Male

DRUGS (3)
  1. RYTARY [Suspect]
     Active Substance: CARBIDOPA\LEVODOPA
     Dosage: 23.75/95 MG, 4 CAPSULE AT 7AM, 4 CAPSULE AT 11 AM, 2 CAPSULE AT 4 PM, 3 CAPSULE AT 7 PM
     Route: 048
     Dates: start: 20170606
  2. RYTARY [Suspect]
     Active Substance: CARBIDOPA\LEVODOPA
     Indication: PARKINSON^S DISEASE
     Dosage: 23.75/95 MG; THREE CAPSULES THREE TIMES A DAY (7 AM, NOON AND 5 PM)
     Route: 048
     Dates: start: 2016
  3. RYTARY [Suspect]
     Active Substance: CARBIDOPA\LEVODOPA
     Dosage: 23.75/95 MG, 4 CAPSULES IN MORNING, 3 IN NOON AND 3 IN NIGHT
     Route: 048

REACTIONS (5)
  - Death [Fatal]
  - Drug ineffective [Unknown]
  - Mental impairment [Unknown]
  - Hypokinesia [Recovered/Resolved]
  - Speech disorder [Recovered/Resolved]

NARRATIVE: CASE EVENT DATE: 201605
